FAERS Safety Report 7674086-5 (Version None)
Quarter: 2011Q3

REPORT INFORMATION
  Report Type: 
  Country: None (occurrence: None)
  Receive Date: 20110711
  Receipt Date: 20110411
  Transmission Date: 20111222
  Serious: Yes (Disabling)
  Sender: FDA-Public Use
  Company Number: IPC201104-000631

PATIENT

DRUGS (6)
  1. REGLAN [Suspect]
     Indication: ABDOMINAL DISTENSION
     Dates: start: 19800101, end: 20090601
  2. REGLAN [Suspect]
     Indication: DYSPEPSIA
     Dates: start: 19800101, end: 20090601
  3. REGLAN [Suspect]
     Indication: IMPAIRED GASTRIC EMPTYING
     Dates: start: 19800101, end: 20090601
  4. METOCLOPRAMIDE HYDROCHLORIDE [Suspect]
     Indication: ABDOMINAL DISTENSION
     Dates: start: 19800101, end: 20090601
  5. METOCLOPRAMIDE HYDROCHLORIDE [Suspect]
     Indication: IMPAIRED GASTRIC EMPTYING
     Dates: start: 19800101, end: 20090601
  6. METOCLOPRAMIDE HYDROCHLORIDE [Suspect]
     Indication: DYSPEPSIA
     Dates: start: 19800101, end: 20090601

REACTIONS (2)
  - TARDIVE DYSKINESIA [None]
  - EXTRAPYRAMIDAL DISORDER [None]
